FAERS Safety Report 19732386 (Version 1)
Quarter: 2021Q3

REPORT INFORMATION
  Report Type: Spontaneous
  Country: DE (occurrence: DE)
  Receive Date: 20210822
  Receipt Date: 20210822
  Transmission Date: 20211014
  Serious: Yes (Hospitalization, Other)
  Sender: FDA-Public Use
  Company Number: DE-SAMSUNG BIOEPIS-SB-2021-19665

PATIENT
  Age: 22 Month
  Sex: Male

DRUGS (5)
  1. IMMUNOGLOBULINS [Concomitant]
     Indication: KAWASAKI^S DISEASE
     Dosage: UNKNOWN
     Route: 042
  2. INFLIXIMAB [Suspect]
     Active Substance: INFLIXIMAB
     Indication: KAWASAKI^S DISEASE
     Dosage: UNKNOWN
     Route: 065
  3. INFLIXIMAB [Suspect]
     Active Substance: INFLIXIMAB
     Indication: CORONARY ARTERY DILATATION
  4. ACETYLSALICYLIC ACID [Concomitant]
     Active Substance: ASPIRIN
     Indication: KAWASAKI^S DISEASE
     Dosage: UNKNOWN, IN THERAPEUTIC DOSES
     Route: 065
  5. PREDNISOLONE. [Concomitant]
     Active Substance: PREDNISOLONE
     Indication: KAWASAKI^S DISEASE
     Dosage: UNKNOWN
     Route: 065

REACTIONS (6)
  - Cardiac perfusion defect [Unknown]
  - Off label use [Unknown]
  - Coronary artery stenosis [Unknown]
  - Cerebral microhaemorrhage [Unknown]
  - Leukoencephalopathy [Unknown]
  - Enlarged cerebral perivascular spaces [Unknown]
